FAERS Safety Report 6078503-6 (Version None)
Quarter: 2009Q1

REPORT INFORMATION
  Report Type: 
  Country: None (occurrence: None)
  Receive Date: 20090211
  Receipt Date: 20090211
  Transmission Date: 20090719
  Serious: No
  Sender: FDA-Public Use
  Company Number: None

PATIENT
  Age: 34 Month
  Sex: Female
  Weight: 56.6996 kg

DRUGS (1)
  1. BUDEPRION 300MG [Suspect]
     Indication: DEPRESSION
     Dosage: 1 PILL ONCE DAILU PO
     Route: 048
     Dates: start: 20090208, end: 20090208

REACTIONS (5)
  - ABDOMINAL PAIN UPPER [None]
  - DIARRHOEA [None]
  - HEADACHE [None]
  - INSOMNIA [None]
  - MALAISE [None]
